FAERS Safety Report 14929510 (Version 1)
Quarter: 2018Q2

REPORT INFORMATION
  Report Type: Spontaneous
  Country: US (occurrence: US)
  Receive Date: 20180523
  Receipt Date: 20180523
  Transmission Date: 20180711
  Serious: No
  Sender: FDA-Public Use
  Company Number: US-TEIKOKU PHARMA USA-TPU2018-00326

PATIENT
  Sex: Female
  Weight: 49.94 kg

DRUGS (2)
  1. FENTANYL. [Concomitant]
     Active Substance: FENTANYL
     Indication: BACK PAIN
  2. LIDOCAINE PATCH [Suspect]
     Active Substance: LIDOCAINE
     Indication: BACK PAIN
     Dosage: APPLY ONE PATCH TO THE BACK FOR PAIN
     Route: 061
     Dates: start: 2016, end: 2017

REACTIONS (1)
  - Drug ineffective for unapproved indication [Unknown]
